FAERS Safety Report 4373258-5 (Version None)
Quarter: 2004Q2

REPORT INFORMATION
  Report Type: 
  Country: None (occurrence: None)
  Receive Date: 20040608
  Receipt Date: 20040304
  Transmission Date: 20050107
  Serious: Yes (Death)
  Sender: FDA-Public Use
  Company Number: FR-GLAXOSMITHKLINE-B0326579A

PATIENT
  Sex: Female
  Weight: 80 kg

DRUGS (7)
  1. SERETIDE [Suspect]
     Indication: ASTHMA
     Dosage: 2PUFF TWICE PER DAY
     Route: 055
     Dates: start: 20010101, end: 20030801
  2. MEDROL [Suspect]
     Indication: ASTHMA
     Dosage: 8MG PER DAY
     Route: 048
     Dates: start: 20030501, end: 20030801
  3. NITRIDERM [Concomitant]
     Dosage: 5MG PER DAY
     Dates: start: 20000101, end: 20030101
  4. KARDEGIC [Concomitant]
     Dosage: 160MG PER DAY
     Route: 048
     Dates: start: 19960101, end: 20030101
  5. LASILIX [Concomitant]
     Dosage: 40MG PER DAY
     Route: 048
     Dates: start: 19990101, end: 20030101
  6. DAFLON [Concomitant]
     Indication: VENOUS INSUFFICIENCY
     Dosage: 500MG TWICE PER DAY
     Route: 048
     Dates: start: 19950101, end: 20030101
  7. HYDROCORTISONE [Concomitant]
     Indication: ASTHMA
     Dosage: 20MG PER DAY
     Route: 048
     Dates: start: 20020801, end: 20030801

REACTIONS (4)
  - DRY SKIN [None]
  - HYPERCORTICOIDISM [None]
  - HYPOXIC ENCEPHALOPATHY [None]
  - SKIN ATROPHY [None]
